FAERS Safety Report 16276214 (Version 3)
Quarter: 2019Q3

REPORT INFORMATION
  Report Type: Report from Study
  Country: US (occurrence: US)
  Receive Date: 20190505
  Receipt Date: 20190917
  Transmission Date: 20191004
  Serious: No
  Sender: FDA-Public Use
  Company Number: PHEH2019US018963

PATIENT
  Age: 59 Year
  Sex: Female

DRUGS (2)
  1. COSENTYX [Suspect]
     Active Substance: SECUKINUMAB
     Dosage: 300 MG, QMO (Q4W)
     Route: 058
     Dates: start: 20190717, end: 20190717
  2. COSENTYX [Suspect]
     Active Substance: SECUKINUMAB
     Indication: PSORIASIS
     Dosage: 300 MG, QW (AT WEEKS 0,1,2,3,4, THEN INJECT 2 PENS (300 MG), Q4W THEREAFTER)
     Route: 058
     Dates: start: 20190410

REACTIONS (3)
  - Bronchitis [Unknown]
  - Cough [Unknown]
  - Urine output decreased [Unknown]

NARRATIVE: CASE EVENT DATE: 20190410
